FAERS Safety Report 6541730-5 (Version None)
Quarter: 2010Q1

REPORT INFORMATION
  Report Type: 
  Country: None (occurrence: None)
  Receive Date: 20100119
  Receipt Date: 20100112
  Transmission Date: 20100710
  Serious: Yes (Other)
  Sender: FDA-Public Use
  Company Number: US-SANOFI-AVENTIS-A03200904850

PATIENT
  Age: 68 Year
  Sex: Female

DRUGS (6)
  1. DRONEDARONE HCL [Suspect]
     Indication: ATRIAL FIBRILLATION
     Dosage: UNIT DOSE: 400 MG
     Route: 048
     Dates: start: 20091015
  2. COLCHICINE [Concomitant]
     Indication: GOUT
     Route: 065
  3. DIOVAN [Concomitant]
     Route: 065
  4. COUMADIN [Concomitant]
     Route: 065
  5. PROPRANOLOL HYDROCHLORIDE [Concomitant]
     Route: 065
  6. SIMVASTATIN [Concomitant]
     Route: 065

REACTIONS (1)
  - ATRIAL FIBRILLATION [None]
